FAERS Safety Report 6033850-9 (Version None)
Quarter: 2009Q1

REPORT INFORMATION
  Report Type: 
  Country: None (occurrence: None)
  Receive Date: 20090109
  Receipt Date: 20090109
  Transmission Date: 20090719
  Serious: No
  Sender: FDA-Public Use
  Company Number: None

PATIENT
  Sex: Female
  Weight: 42.6381 kg

DRUGS (1)
  1. NORVASC [Suspect]
     Dosage: 5 MGM QD PO
     Route: 048
     Dates: start: 20070301, end: 20071101

REACTIONS (5)
  - ANOREXIA [None]
  - DYSPEPSIA [None]
  - INTRAOCULAR PRESSURE INCREASED [None]
  - NAUSEA [None]
  - WEIGHT DECREASED [None]
